FAERS Safety Report 19575678 (Version 2)
Quarter: 2022Q1

REPORT INFORMATION
  Report Type: Spontaneous
  Country: AR (occurrence: AR)
  Receive Date: 20210719
  Receipt Date: 20220308
  Transmission Date: 20220423
  Serious: Yes (Hospitalization, Other)
  Sender: FDA-Public Use
  Company Number: AR-PFIZER INC-2021755566

PATIENT
  Age: 63 Year
  Sex: Female

DRUGS (1)
  1. XELJANZ [Suspect]
     Active Substance: TOFACITINIB CITRATE
     Indication: Rheumatoid arthritis
     Dosage: 5 MG, 2X/DAY
     Dates: start: 20200210

REACTIONS (8)
  - COVID-19 [Recovered/Resolved with Sequelae]
  - Disorientation [Recovered/Resolved]
  - Anaemia [Recovering/Resolving]
  - Blood triglycerides increased [Recovering/Resolving]
  - Pneumonia [Unknown]
  - Blood cholesterol increased [Unknown]
  - Herpes zoster [Not Recovered/Not Resolved]
  - Malaise [Not Recovered/Not Resolved]

NARRATIVE: CASE EVENT DATE: 20210424
